APPROVED DRUG PRODUCT: VIEKIRA XR
Active Ingredient: DASABUVIR SODIUM; OMBITASVIR; PARITAPREVIR; RITONAVIR
Strength: EQ 200MG BASE;8.33MG;50MG;33.33MG **Federal Register determination that product was not discontinued or withdrawn for safety or effectiveness reasons**
Dosage Form/Route: TABLET, EXTENDED RELEASE;ORAL
Application: N208624 | Product #001
Applicant: ABBVIE INC
Approved: Jul 22, 2016 | RLD: Yes | RS: No | Type: DISCN

PATENTS:
Patent 9139536 | Expires: Nov 9, 2028
Patent 9044480 | Expires: Apr 10, 2031
Patent 8466159 | Expires: Sep 4, 2032
Patent 9006387 | Expires: Jun 10, 2030
Patent 8501238 | Expires: Sep 17, 2028
Patent 9333204 | Expires: Jan 2, 2035
Patent 8642538 | Expires: Sep 10, 2029
Patent 8685984 | Expires: Sep 4, 2032
Patent 10201584 | Expires: May 17, 2032
Patent 8680106 | Expires: Sep 4, 2032
Patent 8492386 | Expires: Sep 4, 2032
Patent 9744170 | Expires: Jan 2, 2035
Patent 8188104 | Expires: May 17, 2029
Patent 10105365 | Expires: Jan 2, 2035
Patent 8686026 | Expires: Jun 9, 2031
Patent 10201541 | Expires: May 17, 2032
Patent 8691938 | Expires: Apr 13, 2032
Patent 8420596 | Expires: Apr 10, 2031